FAERS Safety Report 4615638-6 (Version None)
Quarter: 2005Q1

REPORT INFORMATION
  Report Type: 
  Country: None (occurrence: None)
  Receive Date: 20050317
  Receipt Date: 20050308
  Transmission Date: 20050727
  Serious: Yes (Other)
  Sender: FDA-Public Use
  Company Number: 2005-BP-03669RO

PATIENT
  Age: 91 Year
  Sex: Female
  Weight: 52 kg

DRUGS (10)
  1. HYDROMORPHONE HCL [Suspect]
     Indication: ANAESTHESIA
     Dosage: 0.4 MG INITIAL THEN 30 MCG/HR
  2. BUPIVACAINE [Suspect]
     Indication: ANAESTHESIA
     Dosage: 4 MG OF 0.25% INITIAL AND
  3. RANITIDINE [Concomitant]
  4. RALOXIFENE HCL [Concomitant]
  5. VERAPAMIL [Concomitant]
  6. VITAMIN B12 [Concomitant]
  7. IRON (SUPPLEMENTS (IRON PREPARATIONS) [Concomitant]
  8. LATANOPROST [Concomitant]
  9. TIMOLOL MALEATE [Concomitant]
  10. UNFRACTIONALIZED HEPARIN (HEPARIN) [Concomitant]

REACTIONS (8)
  - AREFLEXIA [None]
  - ASTHENIA [None]
  - DIPLEGIA [None]
  - EXTRADURAL HAEMATOMA [None]
  - FEELING OF BODY TEMPERATURE CHANGE [None]
  - LOSS OF PROPRIOCEPTION [None]
  - SPINAL CORD COMPRESSION [None]
  - SPINAL DISORDER [None]
